FAERS Safety Report 6880283-9 (Version None)
Quarter: 2010Q3

REPORT INFORMATION
  Report Type: 
  Country: None (occurrence: None)
  Receive Date: 20100728
  Receipt Date: 20100412
  Transmission Date: 20110219
  Serious: No
  Sender: FDA-Public Use
  Company Number: US-BRISTOL-MYERS SQUIBB COMPANY-15058845

PATIENT
  Age: 73 Year
  Sex: Female

DRUGS (14)
  1. GLYBURIDE AND METFORMIN HYDROCHLORIDE [Suspect]
     Indication: DIABETES MELLITUS
     Dosage: 2.5MG GLYBURIDE + 500MG METFORMIN HYDROCHLORIDE
     Dates: start: 20070101, end: 20091201
  2. DIOVAN [Concomitant]
  3. ASPIRIN [Concomitant]
  4. ALBUTEROL [Concomitant]
  5. LASIX [Concomitant]
  6. LIPITOR [Concomitant]
  7. MAGNESIUM OXIDE [Concomitant]
  8. METHOTREXATE [Concomitant]
  9. METOPROLOL TARTRATE [Concomitant]
  10. NEXIUM [Concomitant]
  11. PLAVIX [Concomitant]
  12. POTASSIUM [Concomitant]
  13. REMICADE [Concomitant]
  14. SOTALOL HCL [Concomitant]

REACTIONS (1)
  - BLOOD GLUCOSE DECREASED [None]
